FAERS Safety Report 18227007 (Version 4)
Quarter: 2021Q1

REPORT INFORMATION
  Report Type: Spontaneous
  Country: CA (occurrence: CA)
  Receive Date: 20200903
  Receipt Date: 20210127
  Transmission Date: 20210419
  Serious: Yes (Other)
  Sender: FDA-Public Use
  Company Number: CA-PFIZER INC-2020339364

PATIENT
  Age: 29 Year
  Sex: Male

DRUGS (4)
  1. PREDNISONE. [Concomitant]
     Active Substance: PREDNISONE
     Dosage: 1 DF
  2. XELJANZ [Suspect]
     Active Substance: TOFACITINIB CITRATE
     Indication: COLITIS ULCERATIVE
     Dosage: 10 MG, 2X/DAY
     Route: 048
     Dates: start: 20200827, end: 20201025
  3. CORTISONE [Concomitant]
     Active Substance: CORTISONE
     Dosage: UNK
     Dates: start: 20200827
  4. XELJANZ [Suspect]
     Active Substance: TOFACITINIB CITRATE
     Dosage: 5 MG, 2X/DAY
     Route: 048
     Dates: start: 20201026

REACTIONS (8)
  - Frequent bowel movements [Unknown]
  - Product dose omission issue [Unknown]
  - Poor quality sleep [Unknown]
  - Flatulence [Not Recovered/Not Resolved]
  - Defaecation urgency [Recovering/Resolving]
  - Haematochezia [Unknown]
  - Therapeutic product effect incomplete [Unknown]
  - Dyschezia [Unknown]

NARRATIVE: CASE EVENT DATE: 20201025
